FAERS Safety Report 17001719 (Version 7)
Quarter: 2020Q1

REPORT INFORMATION
  Report Type: Report from Study
  Country: CO (occurrence: CO)
  Receive Date: 20191106
  Receipt Date: 20200204
  Transmission Date: 20200409
  Serious: Yes (Hospitalization)
  Sender: FDA-Public Use
  Company Number: NVSC2019CO022077

PATIENT
  Sex: Female

DRUGS (5)
  1. REVOLADE [Suspect]
     Active Substance: ELTROMBOPAG
     Dosage: 25 MG, QD
     Route: 048
  2. REVOLADE [Suspect]
     Active Substance: ELTROMBOPAG
     Indication: IMMUNE THROMBOCYTOPENIC PURPURA
     Dosage: 75 MG, QD
     Route: 048
     Dates: start: 20191009
  3. METHYLPREDNISOLONE. [Concomitant]
     Active Substance: METHYLPREDNISOLONE
     Indication: PRODUCT USED FOR UNKNOWN INDICATION
     Dosage: UNK
     Route: 065
  4. REVOLADE [Suspect]
     Active Substance: ELTROMBOPAG
     Dosage: 75 MG
     Route: 048
  5. REVOLADE [Suspect]
     Active Substance: ELTROMBOPAG
     Dosage: 50 MG, QD
     Route: 048

REACTIONS (17)
  - Hepatic infection [Unknown]
  - Spleen disorder [Unknown]
  - Yellow skin [Unknown]
  - Drug intolerance [Unknown]
  - Gastritis [Recovering/Resolving]
  - Blood bilirubin decreased [Unknown]
  - Hepatitis [Unknown]
  - Glycosylated haemoglobin increased [Recovering/Resolving]
  - Ocular icterus [Unknown]
  - Pain [Unknown]
  - Platelet count decreased [Unknown]
  - Hyperglycaemia [Recovering/Resolving]
  - Gallbladder disorder [Unknown]
  - Platelet count increased [Unknown]
  - Peripheral swelling [Unknown]
  - Transaminases increased [Unknown]
  - Chromaturia [Unknown]
